FAERS Safety Report 23124234 (Version 1)
Quarter: 2023Q4

REPORT INFORMATION
  Report Type: Spontaneous
  Country: US (occurrence: US)
  Receive Date: 20231030
  Receipt Date: 20231030
  Transmission Date: 20240110
  Serious: No
  Sender: FDA-Public Use
  Company Number: US-BRISTOL-MYERS SQUIBB COMPANY-2023-153763

PATIENT
  Age: 66 Year
  Sex: Male
  Weight: 126.1 kg

DRUGS (1)
  1. REVLIMID [Suspect]
     Active Substance: LENALIDOMIDE
     Indication: Follicular lymphoma
     Dosage: FREQUENCY: 21D ON 7D OFF?ONGOING
     Route: 048

REACTIONS (2)
  - Gingival bleeding [Recovering/Resolving]
  - Tooth infection [Recovering/Resolving]
